FAERS Safety Report 17800543 (Version 1)
Quarter: 2020Q2

REPORT INFORMATION
  Report Type: Report from Study
  Country: US (occurrence: US)
  Receive Date: 20200519
  Receipt Date: 20200519
  Transmission Date: 20200714
  Serious: Yes (Other)
  Sender: FDA-Public Use
  Company Number: US-ROCHE-2582229

PATIENT
  Sex: Female
  Weight: 81.72 kg

DRUGS (3)
  1. XELODA [Suspect]
     Active Substance: CAPECITABINE
     Indication: BREAST CANCER
     Dosage: UNKNOWN
     Route: 048
     Dates: start: 20180801
  2. XELODA [Suspect]
     Active Substance: CAPECITABINE
     Indication: BREAST CANCER FEMALE
     Dosage: TAKE 2 TABLET(S) BY MOUTH TWICE A DAY 10 DAYS ON
     Route: 048
  3. XELODA [Suspect]
     Active Substance: CAPECITABINE
     Dosage: TAKE 4 TABLET(S) BY MOUTH TWICE A DAY 10 DAYS ON
     Route: 048

REACTIONS (10)
  - Pain in extremity [Unknown]
  - Hand-foot-and-mouth disease [Unknown]
  - Palmar-plantar erythrodysaesthesia syndrome [Unknown]
  - Dizziness [Unknown]
  - Cutaneous lupus erythematosus [Unknown]
  - Pruritus [Unknown]
  - Dry skin [Unknown]
  - Skin exfoliation [Unknown]
  - Systemic lupus erythematosus [Unknown]
  - Weight increased [Unknown]

NARRATIVE: CASE EVENT DATE: 2020
